FAERS Safety Report 5107610-7 (Version None)
Quarter: 2006Q3

REPORT INFORMATION
  Report Type: 
  Country: None (occurrence: None)
  Receive Date: 20060731
  Receipt Date: 20060407
  Transmission Date: 20061208
  Serious: No
  Sender: FDA-Public Use
  Company Number: 2006PV011689

PATIENT
  Age: 55 Year
  Sex: Male
  Weight: 120.2032 kg

DRUGS (5)
  1. BYETTA [Suspect]
     Indication: DIABETES MELLITUS NON-INSULIN-DEPENDENT
     Dosage: 10 + 5 MCG; BID; SC
     Route: 058
     Dates: start: 20060302, end: 20060401
  2. BYETTA [Suspect]
     Indication: DIABETES MELLITUS NON-INSULIN-DEPENDENT
     Dosage: 10 + 5 MCG; BID; SC
     Route: 058
     Dates: start: 20060402
  3. HUMALOG 70/30 [Concomitant]
  4. GLUCOTROL XL [Concomitant]
  5. CHROMIUM [Concomitant]

REACTIONS (9)
  - ABNORMAL SLEEP-RELATED EVENT [None]
  - ANOREXIA [None]
  - BLOOD GLUCOSE DECREASED [None]
  - DIARRHOEA [None]
  - FEELING JITTERY [None]
  - NAUSEA [None]
  - SOMNOLENCE [None]
  - THERAPEUTIC RESPONSE UNEXPECTED [None]
  - WEIGHT DECREASED [None]
